FAERS Safety Report 6632271-5 (Version None)
Quarter: 2010Q1

REPORT INFORMATION
  Report Type: 
  Country: None (occurrence: None)
  Receive Date: 20100312
  Receipt Date: 20100302
  Transmission Date: 20100710
  Serious: Yes (Death, Other)
  Sender: FDA-Public Use
  Company Number: PL-MPIJNJ-2010-01495

PATIENT

DRUGS (3)
  1. VELCADE [Suspect]
     Indication: LEUKAEMIA PLASMACYTIC
     Dosage: UNK
  2. DOXORUBICIN [Suspect]
     Indication: LEUKAEMIA PLASMACYTIC
  3. DEXAMETHASONE [Suspect]
     Indication: LEUKAEMIA PLASMACYTIC

REACTIONS (16)
  - CONSTIPATION [None]
  - DIARRHOEA [None]
  - FATIGUE [None]
  - HERPES ZOSTER [None]
  - HYPOKALAEMIA [None]
  - HYPONATRAEMIA [None]
  - HYPOTENSION [None]
  - INFECTION [None]
  - INTESTINAL OBSTRUCTION [None]
  - LEUKAEMIA PLASMACYTIC [None]
  - NEUROPATHY PERIPHERAL [None]
  - NEUTROPENIA [None]
  - PARAESTHESIA [None]
  - THROMBOCYTOPENIA [None]
  - TRANSAMINASES INCREASED [None]
  - VISUAL IMPAIRMENT [None]
